FAERS Safety Report 9673547 (Version 1)
Quarter: 2013Q4

REPORT INFORMATION
  Report Type: Spontaneous
  Country: US (occurrence: US)
  Receive Date: 20131106
  Receipt Date: 20131106
  Transmission Date: 20140711
  Serious: Yes (Hospitalization, Other)
  Sender: FDA-Public Use
  Company Number: US-AMGEN-USASP2013074580

PATIENT
  Sex: 0

DRUGS (1)
  1. ENBREL [Suspect]
     Indication: PSORIASIS
     Dosage: UNK
     Route: 065
     Dates: start: 2009

REACTIONS (3)
  - Multiple sclerosis [Unknown]
  - Headache [Unknown]
  - Psoriasis [Unknown]
